FAERS Safety Report 15859080 (Version 1)
Quarter: 2019Q1

REPORT INFORMATION
  Report Type: Spontaneous
  Country: FR (occurrence: FR)
  Receive Date: 20190123
  Receipt Date: 20190123
  Transmission Date: 20190417
  Serious: Yes (Hospitalization)
  Sender: FDA-Public Use
  Company Number: FR-MYLANLABS-2019M1005496

PATIENT
  Age: 12 Year
  Sex: Female
  Weight: 37 kg

DRUGS (1)
  1. METHOTREXATE MYLAN [Suspect]
     Active Substance: METHOTREXATE SODIUM
     Indication: OSTEOSARCOMA
     Dosage: 9.8 GRAM, TOTAL
     Route: 042
     Dates: start: 20180123, end: 20180123

REACTIONS (5)
  - Paraesthesia oral [Recovered/Resolved]
  - Acute kidney injury [Recovered/Resolved]
  - Incorrect disposal of product [Recovering/Resolving]
  - Hypoaesthesia [Recovering/Resolving]
  - Hepatitis [Recovering/Resolving]

NARRATIVE: CASE EVENT DATE: 20180124
